FAERS Safety Report 12072623 (Version 7)
Quarter: 2016Q2

REPORT INFORMATION
  Report Type: Report from Study
  Country: CN (occurrence: CN)
  Receive Date: 20160212
  Receipt Date: 20160516
  Transmission Date: 20160815
  Serious: Yes (Death, Life-Threatening, Hospitalization)
  Sender: FDA-Public Use
  Company Number: CN-AMGEN-CHNCT2016016564

PATIENT
  Age: 73 Year
  Sex: Female
  Weight: 53 kg

DRUGS (29)
  1. DEXAMETHASONE. [Concomitant]
     Active Substance: DEXAMETHASONE
     Indication: PROPHYLAXIS
     Dosage: 4-5 MG, UNK
     Dates: start: 20160203, end: 20160206
  2. VITAMIN C [Concomitant]
     Active Substance: ASCORBIC ACID
     Indication: PROPHYLAXIS
  3. DIPHENHYDRAMINE HYDROCHLORIDE. [Concomitant]
     Active Substance: DIPHENHYDRAMINE HYDROCHLORIDE
     Indication: IRRITABILITY
     Dosage: 20 MG, UNK
     Dates: start: 20160205, end: 20160205
  4. FUROSEMIDE. [Concomitant]
     Active Substance: FUROSEMIDE
     Indication: ACUTE KIDNEY INJURY
  5. SODIUM [Concomitant]
     Active Substance: SODIUM
     Indication: PROPHYLAXIS
     Dosage: 500 ML, UNK
     Dates: start: 20160203, end: 20160206
  6. AMMONIUM BROMIDE. [Concomitant]
     Active Substance: AMMONIUM BROMIDE
     Indication: LUNG INFECTION
     Dosage: 10 ML, UNK
     Dates: start: 20160204, end: 20160215
  7. FOLIC ACID. [Concomitant]
     Active Substance: FOLIC ACID
     Indication: PROPHYLAXIS
     Dosage: 400 MCG, UNK
     Dates: start: 20160128, end: 20160215
  8. FUROSEMIDE. [Concomitant]
     Active Substance: FUROSEMIDE
     Indication: FACE OEDEMA
  9. CISPLATIN. [Concomitant]
     Active Substance: CISPLATIN
     Dosage: 30-50 MUG, UNK
     Dates: start: 20151230, end: 20160205
  10. PEMETREXED DISODIUM [Concomitant]
     Active Substance: PEMETREXED DISODIUM
     Dosage: 780-800 MG, UNK
     Dates: start: 20160107, end: 20160203
  11. FUROSEMIDE. [Concomitant]
     Active Substance: FUROSEMIDE
     Indication: OEDEMA PERIPHERAL
  12. ONDANSETRON HYDROCHLORIDE. [Concomitant]
     Active Substance: ONDANSETRON HYDROCHLORIDE
     Indication: PROPHYLAXIS OF NAUSEA AND VOMITING
     Dosage: 8 MG, UNK
     Dates: start: 20160203, end: 20160207
  13. POTASSIUM [Concomitant]
     Active Substance: POTASSIUM
     Indication: PROPHYLAXIS
     Dosage: 500 ML, UNK
     Dates: start: 20160203, end: 20160206
  14. FUROSEMIDE. [Concomitant]
     Active Substance: FUROSEMIDE
     Indication: OEDEMA PERIPHERAL
  15. MAGNESIUM [Concomitant]
     Active Substance: MAGNESIUM
     Indication: PROPHYLAXIS
     Dosage: 500 ML, UNK
     Dates: start: 20160203, end: 20160206
  16. GLUCOSE [Concomitant]
     Active Substance: DEXTROSE
     Indication: PROPHYLAXIS
     Dosage: 500 ML, UNK
     Dates: start: 20160203, end: 20160206
  17. 18-AMINO ACID CO [Concomitant]
     Indication: PARENTERAL NUTRITION
     Dosage: 250 ML, UNK
     Dates: start: 20160130, end: 20160213
  18. DARBEPOETIN ALFA [Suspect]
     Active Substance: DARBEPOETIN ALFA
     Indication: ANAEMIA OF MALIGNANT DISEASE
     Dosage: UNK
     Route: 065
     Dates: start: 20160202, end: 20160202
  19. FUROSEMIDE. [Concomitant]
     Active Substance: FUROSEMIDE
     Indication: ACUTE KIDNEY INJURY
     Dosage: 10-20 MG, UNK
     Dates: start: 20160201, end: 20160215
  20. FUROSEMIDE. [Concomitant]
     Active Substance: FUROSEMIDE
     Indication: FLUID RETENTION
  21. CALCIUM [Concomitant]
     Active Substance: CALCIUM
     Indication: PROPHYLAXIS
     Dosage: 500 ML, UNK
     Dates: start: 20160203, end: 20160206
  22. TIOPRONIN [Concomitant]
     Active Substance: TIOPRONIN
     Indication: LIVER DISORDER
     Dosage: 200 MG, UNK
     Dates: start: 20160129, end: 20160206
  23. VITAMIN B12 [Concomitant]
     Active Substance: CYANOCOBALAMIN
     Indication: PROPHYLAXIS
     Dosage: 1 MG, UNK
     Dates: start: 20160203, end: 20160203
  24. TROPISETRON HYDROCHLORIDE [Concomitant]
     Active Substance: TROPISETRON HYDROCHLORIDE
     Indication: PROPHYLAXIS
     Dosage: 5 MG, UNK
     Dates: start: 20160203, end: 20160211
  25. VITAMIN C [Concomitant]
     Active Substance: ASCORBIC ACID
     Indication: NUTRITIONAL SUPPLEMENTATION
     Dosage: 1-2 G, UNK
     Dates: start: 20160203, end: 20160213
  26. VITAMIN C [Concomitant]
     Active Substance: ASCORBIC ACID
     Indication: NUTRITIONAL SUPPLEMENTATION
  27. VITAMIN B6 [Concomitant]
     Active Substance: PYRIDOXINE HYDROCHLORIDE
     Indication: NUTRITIONAL SUPPLEMENTATION
     Dosage: 100-200 MG, UNK
     Dates: start: 20160203, end: 20160213
  28. RIBAVIRIN. [Concomitant]
     Active Substance: RIBAVIRIN
     Indication: NASOPHARYNGITIS
     Dosage: 200 MG, UNK
     Route: 002
     Dates: start: 20160204, end: 20160215
  29. BRUCEA JAVANICA OIL [Concomitant]
     Indication: NEOPLASM
     Dosage: 30 ML, UNK
     Dates: start: 20160130, end: 20160208

REACTIONS (4)
  - Bone marrow failure [Recovered/Resolved]
  - Lung infection [Recovered/Resolved]
  - Haemorrhage intracranial [Fatal]
  - Acute kidney injury [Recovered/Resolved]

NARRATIVE: CASE EVENT DATE: 20160206
